FAERS Safety Report 9439740 (Version 1)
Quarter: 2013Q3

REPORT INFORMATION
  Report Type: Spontaneous
  Country: US (occurrence: None)
  Receive Date: 20130802
  Receipt Date: 20130802
  Transmission Date: 20140515
  Serious: No
  Sender: FDA-Public Use
  Company Number: None

PATIENT
  Age: 77 Year
  Sex: Female
  Weight: 58.06 kg

DRUGS (1)
  1. PROLIA [Suspect]
     Indication: OSTEOPOROSIS
     Dosage: 1 SHOT  EVERY 6 MO
     Dates: start: 20130423

REACTIONS (4)
  - Anxiety [None]
  - Panic attack [None]
  - Tremor [None]
  - Dyspnoea [None]
